FAERS Safety Report 5119980-4 (Version None)
Quarter: 2006Q3

REPORT INFORMATION
  Report Type: 
  Country: None (occurrence: None)
  Receive Date: 20060929
  Receipt Date: 20060914
  Transmission Date: 20061208
  Serious: Yes (Other)
  Sender: FDA-Public Use
  Company Number: 2005S1009985

PATIENT
  Age: 4 Year
  Sex: Female

DRUGS (8)
  1. MERCAPTAMINE BITARTRATE (MERCAPTAMINE BITARTRATE) (150 MG) [Suspect]
     Indication: CYSTINOSIS
     Dosage: SEE IMAGE
     Route: 048
     Dates: start: 20010717
  2. INDOMETHACIN [Concomitant]
  3. OMEPRAZOLE [Concomitant]
  4. POTASSIUM [Concomitant]
  5. SODIUM BICARBONATE [Concomitant]
  6. L-CARNITINE [Concomitant]
  7. PHOSPHORIC ACID [Concomitant]
  8. CYSTEAMINE /00492501/ [Concomitant]

REACTIONS (4)
  - ARTHRALGIA [None]
  - ARTHRITIS [None]
  - CHONDROLYSIS [None]
  - FEMUR FRACTURE [None]
